FAERS Safety Report 18164872 (Version 2)
Quarter: 2020Q4

REPORT INFORMATION
  Report Type: Spontaneous
  Country: US (occurrence: US)
  Receive Date: 20200818
  Receipt Date: 20201130
  Transmission Date: 20210113
  Serious: Yes (Other)
  Sender: FDA-Public Use
  Company Number: US-GILEAD-2020-0489725

PATIENT
  Age: 43 Year
  Sex: Female
  Weight: 117.91 kg

DRUGS (46)
  1. TRUVADA [Suspect]
     Active Substance: EMTRICITABINE\TENOFOVIR DISOPROXIL FUMARATE
     Dosage: UNK
     Route: 048
     Dates: start: 20121010, end: 20160317
  2. EPZICOM [Concomitant]
     Active Substance: ABACAVIR SULFATE\LAMIVUDINE
     Indication: HIV INFECTION
     Dosage: UNK
     Dates: start: 201702
  3. REYATAZ [Concomitant]
     Active Substance: ATAZANAVIR SULFATE
     Indication: HIV INFECTION
     Dosage: UNK
     Dates: start: 201210, end: 201301
  4. DAPSONE. [Concomitant]
     Active Substance: DAPSONE
     Indication: BACTERIAL INFECTION
     Dosage: UNK
     Dates: start: 201104, end: 201212
  5. IBUPROFEN. [Concomitant]
     Active Substance: IBUPROFEN
     Indication: PAIN
     Dosage: UNK
     Dates: start: 201010, end: 201210
  6. VENTOLIN HFA [Concomitant]
     Active Substance: ALBUTEROL SULFATE
  7. FERROUS SULPHATE [FERROUS SULFATE] [Concomitant]
     Active Substance: FERROUS SULFATE
     Indication: ANAEMIA
     Dosage: UNK
     Dates: start: 20170724
  8. ABILIFY [Concomitant]
     Active Substance: ARIPIPRAZOLE
     Indication: BIPOLAR DISORDER
     Dosage: UNK
     Dates: start: 201110
  9. ADVAIR HFA [Concomitant]
     Active Substance: FLUTICASONE PROPIONATE\SALMETEROL XINAFOATE
     Indication: ASTHMA
     Dosage: UNK
     Dates: start: 201009, end: 201212
  10. CLONIDINE. [Concomitant]
     Active Substance: CLONIDINE
     Indication: HYPERTENSION
     Dosage: UNK
     Dates: start: 201210, end: 201212
  11. LISINOPRIL. [Concomitant]
     Active Substance: LISINOPRIL
     Indication: HYPERTENSION
     Dosage: UNK
     Dates: start: 201109, end: 201110
  12. LORATADINE. [Concomitant]
     Active Substance: LORATADINE
     Indication: HYPERSENSITIVITY
     Dosage: UNK
     Dates: start: 201010, end: 201204
  13. TRUVADA [Suspect]
     Active Substance: EMTRICITABINE\TENOFOVIR DISOPROXIL FUMARATE
     Dosage: UNK
     Route: 048
     Dates: start: 20111018, end: 201210
  14. TRAZODONE [Concomitant]
     Active Substance: TRAZODONE HYDROCHLORIDE
     Indication: DEPRESSION
     Dosage: UNK
     Dates: start: 201110, end: 201111
  15. OXAZEPAM. [Concomitant]
     Active Substance: OXAZEPAM
     Indication: DEPRESSION
  16. CEFADROXIL. [Concomitant]
     Active Substance: CEFADROXIL
     Indication: BACTERIAL INFECTION
     Dosage: UNK
     Dates: start: 201112, end: 201112
  17. DIPHENHYDRAMINE. [Concomitant]
     Active Substance: DIPHENHYDRAMINE
     Indication: HYPERSENSITIVITY
     Dosage: UNK
     Dates: start: 200907, end: 201212
  18. OXYCONTIN [Concomitant]
     Active Substance: OXYCODONE HYDROCHLORIDE
     Indication: PAIN
     Dosage: UNK
     Dates: start: 200910, end: 200911
  19. ROBITUSSIN SUGAR FREE COUGH [Concomitant]
     Active Substance: DEXTROMETHORPHAN HYDROBROMIDE\GUAIFENESIN
     Indication: COUGH
     Dosage: UNK
     Dates: start: 201011, end: 201011
  20. TRAMADOL. [Concomitant]
     Active Substance: TRAMADOL
     Indication: PAIN
     Dosage: UNK
     Dates: start: 201210, end: 201605
  21. TIZANIDINE. [Concomitant]
     Active Substance: TIZANIDINE
  22. TRUVADA [Suspect]
     Active Substance: EMTRICITABINE\TENOFOVIR DISOPROXIL FUMARATE
     Indication: HIV INFECTION
     Dosage: UNK
     Route: 048
     Dates: start: 2007, end: 2011
  23. OXAZEPAM. [Concomitant]
     Active Substance: OXAZEPAM
     Indication: ANXIETY
     Dosage: UNK
     Dates: start: 201210, end: 201212
  24. AMLODIPINE BESYLATE. [Concomitant]
     Active Substance: AMLODIPINE BESYLATE
     Indication: HYPERTENSION
     Dosage: UNK
     Dates: start: 201210, end: 201212
  25. CIPROFLOXACIN. [Concomitant]
     Active Substance: CIPROFLOXACIN
     Indication: BACTERIAL INFECTION
     Dosage: UNK
     Dates: start: 201104, end: 201110
  26. FEXOFENADINE [Concomitant]
     Active Substance: FEXOFENADINE HYDROCHLORIDE
     Indication: HYPERSENSITIVITY
     Dosage: UNK
     Dates: start: 201201, end: 201202
  27. PREDNISONE. [Concomitant]
     Active Substance: PREDNISONE
     Indication: INFLAMMATION
     Dosage: UNK
     Dates: start: 201208, end: 201211
  28. ACETAMINOPHEN AND CODEINE [Concomitant]
     Active Substance: ACETAMINOPHEN\CODEINE PHOSPHATE
     Indication: PAIN
     Dosage: UNK
     Dates: start: 201211, end: 201211
  29. AMOXICILLIN. [Concomitant]
     Active Substance: AMOXICILLIN
     Indication: BACTERIAL INFECTION
     Dosage: UNK
     Dates: start: 201211, end: 201211
  30. ATORVASTATIN [Concomitant]
     Active Substance: ATORVASTATIN
     Indication: BLOOD CHOLESTEROL INCREASED
     Dosage: UNK
     Dates: start: 201510
  31. AZITHROMYCIN ANHYDROUS. [Concomitant]
     Active Substance: AZITHROMYCIN ANHYDROUS
     Indication: BACTERIAL INFECTION
     Dosage: UNK
     Dates: start: 201202, end: 201202
  32. HYDROCODONE [Concomitant]
     Active Substance: HYDROCODONE
     Indication: PAIN
     Dosage: UNK
     Dates: start: 200907, end: 200907
  33. PREZCOBIX [Concomitant]
     Active Substance: COBICISTAT\DARUNAVIR ETHANOLATE
  34. BENZONATATE. [Concomitant]
     Active Substance: BENZONATATE
     Indication: COUGH
     Dosage: UNK
     Dates: start: 201202, end: 201203
  35. HYDROXYZINE HCL [Concomitant]
     Active Substance: HYDROXYZINE HYDROCHLORIDE
     Indication: HYPERSENSITIVITY
     Dosage: UNK
     Dates: start: 200907, end: 200907
  36. METOPROLOL. [Concomitant]
     Active Substance: METOPROLOL
     Indication: HYPERTENSION
     Dosage: UNK
     Dates: start: 201109, end: 201110
  37. METRONIDAZOLE. [Concomitant]
     Active Substance: METRONIDAZOLE
     Indication: BACTERIAL INFECTION
     Dosage: UNK
     Dates: start: 201104, end: 201104
  38. ERGOCALCIFEROL. [Concomitant]
     Active Substance: ERGOCALCIFEROL
     Indication: ANAEMIA
     Dosage: UNK
     Dates: start: 20180927
  39. CEPHALEXINE [Concomitant]
     Active Substance: CEPHALEXIN
     Indication: BACTERIAL INFECTION
     Dosage: UNK
     Dates: start: 200907, end: 201109
  40. FAMOTIDINE. [Concomitant]
     Active Substance: FAMOTIDINE
     Indication: GASTROOESOPHAGEAL REFLUX DISEASE
     Dosage: UNK
  41. Q-TUSSIN [Concomitant]
     Active Substance: GUAIFENESIN
     Indication: COUGH
     Dosage: UNK
     Dates: start: 201010, end: 201204
  42. WAL-TUSSIN [Concomitant]
     Active Substance: DEXTROMETHORPHAN HYDROBROMIDE
     Indication: COUGH
     Dosage: UNK
     Dates: start: 201010, end: 201011
  43. NORVIR [Concomitant]
     Active Substance: RITONAVIR
     Indication: HIV INFECTION
     Dosage: UNK
     Dates: start: 201110, end: 201809
  44. AVELOX [Concomitant]
     Active Substance: MOXIFLOXACIN HYDROCHLORIDE
     Indication: BACTERIAL INFECTION
     Dosage: UNK
     Dates: start: 201102, end: 201208
  45. IPRATROPIUM [Concomitant]
     Active Substance: IPRATROPIUM
     Indication: ASTHMA
     Dosage: UNK
     Dates: start: 201210, end: 201211
  46. PANTOPRAZOLE [Concomitant]
     Active Substance: PANTOPRAZOLE
     Indication: GASTROOESOPHAGEAL REFLUX DISEASE
     Dosage: UNK

REACTIONS (8)
  - Anhedonia [Not Recovered/Not Resolved]
  - Pain [Not Recovered/Not Resolved]
  - Bone density decreased [Not Recovered/Not Resolved]
  - Depression [Not Recovered/Not Resolved]
  - Emotional distress [Not Recovered/Not Resolved]
  - Anxiety [Not Recovered/Not Resolved]
  - Chronic kidney disease [Not Recovered/Not Resolved]
  - Ankle fracture [Unknown]

NARRATIVE: CASE EVENT DATE: 2011
